FAERS Safety Report 7635503-X (Version None)
Quarter: 2011Q3

REPORT INFORMATION
  Report Type: 
  Country: None (occurrence: None)
  Receive Date: 20110718
  Receipt Date: 20110705
  Transmission Date: 20111222
  Serious: Yes (Life-Threatening, Hospitalization)
  Sender: FDA-Public Use
  Company Number: 1000022127

PATIENT
  Age: 34 Year
  Sex: Male
  Weight: 79 kg

DRUGS (1)
  1. ESCITALOPRAM OXALATE [Suspect]
     Dosage: 10 MG (10 MG, 1 IN 1 D), ORAL
     Route: 048

REACTIONS (8)
  - EPILEPSY [None]
  - DYSPNOEA [None]
  - MYDRIASIS [None]
  - AGGRESSION [None]
  - ANXIETY [None]
  - MUSCLE RIGIDITY [None]
  - ABNORMAL DREAMS [None]
  - TRISMUS [None]
